FAERS Safety Report 22117282 (Version 2)
Quarter: 2023Q2

REPORT INFORMATION
  Report Type: Spontaneous
  Country: CH (occurrence: CH)
  Receive Date: 20230320
  Receipt Date: 20230407
  Transmission Date: 20230722
  Serious: Yes (Other)
  Sender: FDA-Public Use
  Company Number: CH-ORGANON-O2303CHE001534

PATIENT
  Age: 66 Year
  Sex: Female

DRUGS (3)
  1. FOSAMAX [Suspect]
     Active Substance: ALENDRONATE SODIUM
     Indication: Osteoporotic fracture
     Dosage: 70 MILLIGRAM, QW
     Route: 048
     Dates: start: 20210823, end: 20210908
  2. BIMATOPROST\TIMOLOL [Concomitant]
     Active Substance: BIMATOPROST\TIMOLOL
     Dosage: UNK
  3. CALCIUM\CHOLECALCIFEROL [Concomitant]
     Active Substance: CALCIUM\CHOLECALCIFEROL
     Dosage: UNK

REACTIONS (1)
  - Orbital myositis [Recovered/Resolved]

NARRATIVE: CASE EVENT DATE: 20210824
